FAERS Safety Report 7545604-2 (Version None)
Quarter: 2011Q2

REPORT INFORMATION
  Report Type: 
  Country: None (occurrence: None)
  Receive Date: 20110614
  Receipt Date: 20110607
  Transmission Date: 20111010
  Serious: Yes (Other)
  Sender: FDA-Public Use
  Company Number: GB-ASTELLAS-2011EU000629

PATIENT
  Sex: Female

DRUGS (5)
  1. TACROLIMUS [Suspect]
     Indication: DERMATITIS ATOPIC
     Dosage: 0.1 %, PRN
     Route: 061
     Dates: start: 20090108
  2. OILATUM [Concomitant]
     Indication: DERMATITIS ATOPIC
     Dosage: UNK
     Route: 061
     Dates: start: 20090108
  3. EPADERM [Concomitant]
     Indication: DERMATITIS ATOPIC
     Dosage: UNK
     Route: 061
     Dates: start: 20090108
  4. BETNOVATE [Concomitant]
     Indication: DERMATITIS ATOPIC
     Dosage: UNK
     Route: 061
     Dates: start: 20100720
  5. TACROLIMUS [Suspect]
     Dosage: 0.03 %, PRN
     Route: 061
     Dates: start: 20100720

REACTIONS (2)
  - OFF LABEL USE [None]
  - LYMPHADENOPATHY [None]
